FAERS Safety Report 16572913 (Version 2)
Quarter: 2019Q4

REPORT INFORMATION
  Report Type: Spontaneous
  Country: US (occurrence: US)
  Receive Date: 20190715
  Receipt Date: 20191010
  Transmission Date: 20200122
  Serious: Yes (Other)
  Sender: FDA-Public Use
  Company Number: US-SA-2019SA189447

PATIENT
  Sex: Male
  Weight: 58.96 kg

DRUGS (1)
  1. FABRAZYME [Suspect]
     Active Substance: AGALSIDASE BETA
     Dosage: 1 MG/KG, QOW
     Route: 041
     Dates: start: 201805

REACTIONS (2)
  - Drug ineffective [Unknown]
  - End stage renal disease [Unknown]

NARRATIVE: CASE EVENT DATE: 20181115
